FAERS Safety Report 9791985 (Version 2)
Quarter: 2014Q1

REPORT INFORMATION
  Report Type: Spontaneous
  Country: US (occurrence: US)
  Receive Date: 20140102
  Receipt Date: 20140225
  Transmission Date: 20141002
  Serious: No
  Sender: FDA-Public Use
  Company Number: US-TEVA-453712USA

PATIENT
  Age: 29 Year
  Sex: Female
  Weight: 51.76 kg

DRUGS (2)
  1. PARAGARD 380A [Suspect]
     Indication: CONTRACEPTION
     Route: 015
     Dates: start: 20131209, end: 20131212
  2. PARAGARD 380A [Suspect]
     Route: 015
     Dates: start: 20131212

REACTIONS (2)
  - Vulvovaginal pain [Recovered/Resolved]
  - Device expulsion [Recovered/Resolved]
